FAERS Safety Report 6993229-X (Version None)
Quarter: 2010Q3

REPORT INFORMATION
  Report Type: 
  Country: None (occurrence: None)
  Receive Date: 20100917
  Receipt Date: 20100316
  Transmission Date: 20110219
  Serious: No
  Sender: FDA-Public Use
  Company Number: US-ASTRAZENECA-2010SE04004

PATIENT
  Age: 29 Year
  Sex: Female
  Weight: 98.4 kg

DRUGS (4)
  1. SEROQUEL XR [Suspect]
     Indication: BIPOLAR DISORDER
     Route: 048
  2. DARVOCET [Concomitant]
     Indication: PAIN
  3. AMBIEN CR [Concomitant]
     Indication: SLEEP DISORDER
  4. LAMISIL [Concomitant]
     Indication: ONYCHOMYCOSIS

REACTIONS (1)
  - PAIN IN EXTREMITY [None]
